FAERS Safety Report 9270237 (Version 1)
Quarter: 2013Q2

REPORT INFORMATION
  Report Type: Spontaneous
  Country: GR (occurrence: GR)
  Receive Date: 20130503
  Receipt Date: 20130503
  Transmission Date: 20140414
  Serious: Yes (Other)
  Sender: FDA-Public Use
  Company Number: GR-GLAXOSMITHKLINE-B0889151A

PATIENT
  Age: 78 Year
  Sex: Female

DRUGS (2)
  1. SERETIDE DISKUS [Suspect]
     Indication: PYREXIA
     Route: 055
  2. PROCEF [Concomitant]
     Indication: ANTIBIOTIC THERAPY

REACTIONS (2)
  - Pneumonia [Unknown]
  - Pyrexia [Unknown]
